FAERS Safety Report 4751843-6 (Version None)
Quarter: 2005Q3

REPORT INFORMATION
  Report Type: 
  Country: None (occurrence: None)
  Receive Date: 20050822
  Receipt Date: 20050720
  Transmission Date: 20060218
  Serious: Yes (Other)
  Sender: FDA-Public Use
  Company Number: PHEH2005US08088

PATIENT
  Age: 67 Year
  Sex: Female

DRUGS (6)
  1. ZELNORM [Suspect]
     Indication: ABDOMINAL DISTENSION
     Dosage: 6 MG, BID, ORAL
     Route: 048
     Dates: start: 20050714
  2. PROTONIX [Concomitant]
  3. CALCIUM (CALCIUM) [Concomitant]
  4. MULTIVIT (VITAMINS NOS) [Concomitant]
  5. GAS-X (SIMETICONE) [Concomitant]
  6. GLYCERIN SUPPOSITORIES (GLYCEROL, SODIUM STEARATE) [Concomitant]

REACTIONS (4)
  - ABDOMINAL DISTENSION [None]
  - CONDITION AGGRAVATED [None]
  - FAECES HARD [None]
  - HAEMATOCHEZIA [None]
